FAERS Safety Report 15011918 (Version 1)
Quarter: 2018Q2

REPORT INFORMATION
  Report Type: Spontaneous
  Country: US (occurrence: US)
  Receive Date: 20180529
  Receipt Date: 20180529
  Transmission Date: 20180711
  Serious: No
  Sender: FDA-Public Use
  Company Number: None

PATIENT
  Age: 52 Year
  Sex: Female
  Weight: 67.5 kg

DRUGS (2)
  1. SUPREP BOWEL PREP [Suspect]
     Active Substance: MAGNESIUM SULFATE\POTASSIUM SULFATE\SODIUM SULFATE
     Indication: COLONOSCOPY
     Dosage: ?          OTHER FREQUENCY:SPLIT DOSE;?
     Route: 048
     Dates: start: 20180524, end: 20180525
  2. VARIOUS SUPPLEMENTS FOR BONE HEALTH, MENTAL CLARITY AND RELAXATION [Concomitant]

REACTIONS (4)
  - Nausea [None]
  - Vomiting [None]
  - Dizziness [None]
  - Headache [None]

NARRATIVE: CASE EVENT DATE: 20180524
